FAERS Safety Report 18597748 (Version 1)
Quarter: 2020Q4

REPORT INFORMATION
  Report Type: Spontaneous
  Country: SV (occurrence: SV)
  Receive Date: 20201209
  Receipt Date: 20201209
  Transmission Date: 20210114
  Serious: Yes (Other)
  Sender: FDA-Public Use
  Company Number: NVSC2020SV281140

PATIENT
  Age: 55 Year
  Sex: Female
  Weight: 48.89 kg

DRUGS (3)
  1. GLIVEC [Suspect]
     Active Substance: IMATINIB MESYLATE
     Dosage: 300 MG, QD (START DATE: 17 JUL, STOP DATE: TILL DATE)
     Route: 065
  2. GLIVEC [Suspect]
     Active Substance: IMATINIB MESYLATE
     Dosage: 400 MG, QD (1 X 400 MG)
     Route: 065
  3. GLIVEC [Suspect]
     Active Substance: IMATINIB MESYLATE
     Indication: CHRONIC MYELOID LEUKAEMIA
     Dosage: 400 MG, QD (4 X 100 MG)
     Route: 065

REACTIONS (10)
  - Vision blurred [Unknown]
  - Epistaxis [Unknown]
  - Eye irritation [Unknown]
  - Foreign body sensation in eyes [Unknown]
  - Eye pain [Unknown]
  - Weight increased [Unknown]
  - Ocular discomfort [Recovered/Resolved]
  - Ocular hyperaemia [Unknown]
  - Fear [Unknown]
  - Eye swelling [Unknown]

NARRATIVE: CASE EVENT DATE: 20201014
